FAERS Safety Report 11691468 (Version 1)
Quarter: 2015Q4

REPORT INFORMATION
  Report Type: Spontaneous
  Country: NP (occurrence: NP)
  Receive Date: 20151102
  Receipt Date: 20151102
  Transmission Date: 20160304
  Serious: Yes (Other)
  Sender: FDA-Public Use
  Company Number: PHHY2015NP136892

PATIENT
  Age: 26 Year
  Sex: Female

DRUGS (3)
  1. FAMOTIDINE. [Suspect]
     Active Substance: FAMOTIDINE
     Indication: DYSPEPSIA
     Dosage: 40 MG, QD
     Route: 065
  2. TIZANIDINE. [Suspect]
     Active Substance: TIZANIDINE
     Indication: TORTICOLLIS
     Dosage: 2 MG, TID
     Route: 065
  3. ACETAMINOPHEN. [Concomitant]
     Active Substance: ACETAMINOPHEN
     Indication: TORTICOLLIS
     Dosage: 500 MG, QID
     Route: 065

REACTIONS (6)
  - Pollakiuria [Recovering/Resolving]
  - Pain [Recovering/Resolving]
  - Drug level increased [Unknown]
  - Burning sensation [Recovering/Resolving]
  - Drug interaction [Unknown]
  - Cystitis [Recovering/Resolving]
